FAERS Safety Report 8099096-8 (Version None)
Quarter: 2012Q1

REPORT INFORMATION
  Report Type: 
  Country: None (occurrence: None)
  Receive Date: 20120129
  Receipt Date: 20111025
  Transmission Date: 20120608
  Serious: No
  Sender: FDA-Public Use
  Company Number: US-ABBOTT-11P-163-0869274-00

PATIENT
  Sex: Male
  Weight: 111.68 kg

DRUGS (7)
  1. CARAFATE [Concomitant]
     Indication: GASTROOESOPHAGEAL REFLUX PROPHYLAXIS
  2. OMEPRAZOLE [Concomitant]
     Indication: PRODUCT USED FOR UNKNOWN INDICATION
  3. THYROID TAB [Concomitant]
     Indication: HYPOTHYROIDISM
  4. HUMIRA [Suspect]
     Indication: CROHN'S DISEASE
     Dates: start: 20100801
  5. PSEUDOEPHEDRINE HCL [Concomitant]
     Indication: PRODUCT USED FOR UNKNOWN INDICATION
  6. ZOLOFT [Concomitant]
     Indication: DEPRESSION
  7. SULFASALAZINE [Concomitant]
     Indication: CROHN'S DISEASE

REACTIONS (2)
  - DIARRHOEA [None]
  - ABDOMINAL PAIN [None]
